FAERS Safety Report 8982999 (Version 1)
Quarter: 2012Q4

REPORT INFORMATION
  Report Type: Report from Study
  Country: DE (occurrence: DE)
  Receive Date: 20121224
  Receipt Date: 20121224
  Transmission Date: 20130627
  Serious: Yes (Death, Life-Threatening, Hospitalization)
  Sender: FDA-Public Use
  Company Number: DE-BRISTOL-MYERS SQUIBB COMPANY-17222274

PATIENT
  Age: 62 Year
  Sex: Male
  Weight: 51.6 kg

DRUGS (3)
  1. CETUXIMAB [Suspect]
     Indication: HEAD AND NECK CANCER METASTATIC
     Dates: start: 20121019
  2. CISPLATIN [Suspect]
     Indication: HEAD AND NECK CANCER METASTATIC
     Dates: start: 20121012
  3. 5-FU [Suspect]
     Indication: HEAD AND NECK CANCER METASTATIC
     Dates: start: 20121012

REACTIONS (1)
  - Pneumonitis [Fatal]
